FAERS Safety Report 9498343 (Version 1)
Quarter: 2013Q3

REPORT INFORMATION
  Report Type: Spontaneous
  Country: US (occurrence: None)
  Receive Date: 20130903
  Receipt Date: 20130903
  Transmission Date: 20140515
  Serious: Yes (Other)
  Sender: FDA-Public Use
  Company Number: None

PATIENT
  Sex: 0

DRUGS (1)
  1. VALACYCLOVIR [Suspect]
     Indication: KERATITIS
     Route: 048
     Dates: start: 20130206, end: 20130807

REACTIONS (2)
  - Product substitution issue [None]
  - Drug ineffective [None]
